FAERS Safety Report 26152326 (Version 1)
Quarter: 2025Q4

REPORT INFORMATION
  Report Type: Spontaneous
  Country: US (occurrence: US)
  Receive Date: 20251214
  Receipt Date: 20251214
  Transmission Date: 20260118
  Serious: No
  Sender: ABBVIE
  Company Number: US-ABBVIE-6586958

PATIENT
  Sex: Female

DRUGS (1)
  1. CREON [Suspect]
     Active Substance: PANCRELIPASE AMYLASE\PANCRELIPASE LIPASE\PANCRELIPASE PROTEASE
     Indication: Pancreatic failure
     Route: 048

REACTIONS (7)
  - Bladder disorder [Unknown]
  - Urinary tract disorder [Unknown]
  - Diarrhoea [Unknown]
  - Constipation [Unknown]
  - Gastrointestinal disorder [Unknown]
  - Incontinence [Unknown]
  - Adverse drug reaction [Unknown]
